FAERS Safety Report 5005211-2 (Version None)
Quarter: 2006Q2

REPORT INFORMATION
  Report Type: 
  Country: None (occurrence: None)
  Receive Date: 20060512
  Receipt Date: 20060505
  Transmission Date: 20061013
  Serious: Yes (Hospitalization, Other)
  Sender: FDA-Public Use
  Company Number: HQWYE384909JUN04

PATIENT
  Age: 65 Year
  Sex: Male
  Weight: 66.4 kg

DRUGS (8)
  1. ROFERON, CONTROL FOR CCI-779 (INTERFERON ALFA, CONTROL FOR CC1-779, IN [Suspect]
     Indication: RENAL CELL CARCINOMA STAGE UNSPECIFIED
     Dosage: 18 MU TIW, SUBCUTANEOUS
     Route: 058
     Dates: start: 20040519, end: 20040604
  2. ROFERON, CONTROL FOR CCI-779 (INTERFERON ALFA, CONTROL FOR CCI-779, IN [Suspect]
  3. SYNTHROID [Concomitant]
  4. LORTAB [Concomitant]
  5. COUMADIN [Concomitant]
  6. PHENERGAN (PROMETHAZINE HYDROCHLORIDE) [Concomitant]
  7. MARINOL [Concomitant]
  8. LEXAPRO [Concomitant]

REACTIONS (9)
  - BLOOD SODIUM DECREASED [None]
  - CONDITION AGGRAVATED [None]
  - DEHYDRATION [None]
  - DISEASE PROGRESSION [None]
  - DRUG INEFFECTIVE [None]
  - HAEMATOCRIT DECREASED [None]
  - HAEMOGLOBIN DECREASED [None]
  - NAUSEA [None]
  - VOMITING [None]
